FAERS Safety Report 20430273 (Version 1)
Quarter: 2022Q1

REPORT INFORMATION
  Report Type: Report from Study
  Country: FR (occurrence: FR)
  Receive Date: 20220204
  Receipt Date: 20220204
  Transmission Date: 20220423
  Serious: Yes (Hospitalization)
  Sender: FDA-Public Use
  Company Number: FR-SERVIER-S20004719

PATIENT

DRUGS (6)
  1. ONCASPAR [Suspect]
     Active Substance: PEGASPARGASE
     Indication: Acute lymphocytic leukaemia
     Dosage: 850 IU (ON D8 D36 D64)
     Route: 042
     Dates: start: 20190521
  2. DEXAMETHASONE SODIUM PHOSPHATE [Suspect]
     Active Substance: DEXAMETHASONE SODIUM PHOSPHATE
     Indication: Acute lymphocytic leukaemia
     Dosage: 4.5 MG ( D1 TO D5, D29-D33 AND D57-61)
     Route: 048
     Dates: start: 20190514, end: 20190721
  3. VINCRISTINE SULFATE [Suspect]
     Active Substance: VINCRISTINE SULFATE
     Indication: Acute lymphocytic leukaemia
     Dosage: 1 MG ( D1, D8,D29, D36, D57 AND D64)
     Route: 042
     Dates: start: 20190514
  4. METHOTREXATE [Suspect]
     Active Substance: METHOTREXATE
     Indication: Acute lymphocytic leukaemia
     Dosage: 12 MG ( D2 D30 AND D58)
     Route: 037
     Dates: start: 20190515
  5. METHOTREXATE [Suspect]
     Active Substance: METHOTREXATE
     Dosage: 17 MG (D8, D15, D22, D36, D43, D50
     Route: 048
     Dates: start: 20190521, end: 20190808
  6. MERCAPTOPURINE [Suspect]
     Active Substance: MERCAPTOPURINE
     Indication: Acute lymphocytic leukaemia
     Dosage: 35 MG ON D1-D21, D29-D49, D57-D77
     Route: 048
     Dates: start: 20190514

REACTIONS (1)
  - Pyrexia [Recovered/Resolved]

NARRATIVE: CASE EVENT DATE: 20190711
